FAERS Safety Report 10248325 (Version 1)
Quarter: 2014Q2

REPORT INFORMATION
  Report Type: Spontaneous
  Country: US (occurrence: US)
  Receive Date: 20140620
  Receipt Date: 20140620
  Transmission Date: 20141212
  Serious: No
  Sender: FDA-Public Use
  Company Number: US-ASTRAZENECA-2014SE44594

PATIENT
  Age: 72 Year
  Sex: Female

DRUGS (2)
  1. NEXIUM 24 HR [Suspect]
     Indication: DYSPEPSIA
     Route: 048
     Dates: start: 20140610
  2. LISINOPRIL [Concomitant]
     Indication: HYPERTENSION

REACTIONS (2)
  - Abdominal discomfort [Unknown]
  - Insomnia [Unknown]
